FAERS Safety Report 5369060-8 (Version None)
Quarter: 2007Q2

REPORT INFORMATION
  Report Type: 
  Country: None (occurrence: None)
  Receive Date: 20070621
  Receipt Date: 20070621
  Transmission Date: 20071010
  Serious: Yes (Hospitalization)
  Sender: FDA-Public Use
  Company Number: SU-2007-005947

PATIENT
  Age: 70 Year
  Sex: Female

DRUGS (3)
  1. BENICAR HCT [Suspect]
     Indication: HYPERTENSION
     Dosage: 40/12.5 (1/2 TAB ONCE A DAY),PER ORAL
     Route: 048
  2. CHANTIX [Suspect]
     Indication: SMOKING CESSATION THERAPY
     Dosage: 1 MG (1 MG TWICE A DAY),PER ORAL
     Route: 048
  3. WELLBUTRIN [Suspect]
     Indication: DEPRESSION
     Dosage: 300 MG (300 MG,ONCE A DAY),PER ORAL
     Route: 048

REACTIONS (13)
  - AMNESIA [None]
  - BLOOD CHLORIDE DECREASED [None]
  - BLOOD PRESSURE ORTHOSTATIC ABNORMAL [None]
  - BLOOD SODIUM DECREASED [None]
  - FACIAL BONES FRACTURE [None]
  - FALL [None]
  - HYPOVOLAEMIA [None]
  - LACERATION [None]
  - NAUSEA [None]
  - PCO2 INCREASED [None]
  - SINUS BRADYCARDIA [None]
  - SYNCOPE [None]
  - WEIGHT DECREASED [None]
